FAERS Safety Report 5717782-9 (Version None)
Quarter: 2008Q2

REPORT INFORMATION
  Report Type: 
  Country: None (occurrence: None)
  Receive Date: 20080425
  Receipt Date: 20080414
  Transmission Date: 20081010
  Serious: Yes (Hospitalization)
  Sender: FDA-Public Use
  Company Number: GB-AMGEN-US275055

PATIENT
  Sex: Male
  Weight: 84 kg

DRUGS (8)
  1. ENBREL [Suspect]
     Indication: ARTHRITIS REACTIVE
     Route: 058
     Dates: start: 20050307
  2. PREDNISOLONE [Concomitant]
     Dosage: UNKNOWN
     Route: 065
  3. ALBUTEROL [Concomitant]
     Dosage: UNKNOWN
     Route: 065
  4. FOLIC ACID [Concomitant]
     Dosage: UNKNOWN
     Route: 065
  5. MORPHINE SULFATE [Concomitant]
     Dosage: UNKNOWN
     Route: 065
  6. PARACETAMOL [Concomitant]
     Dosage: UNKNOWN
     Route: 065
  7. SULFASALAZINE [Concomitant]
     Dosage: UNKNOWN
     Route: 065
  8. ADCAL [Concomitant]
     Dosage: UNKNOWN
     Route: 065

REACTIONS (1)
  - CELLULITIS [None]
